FAERS Safety Report 23252550 (Version 1)
Quarter: 2023Q4

REPORT INFORMATION
  Report Type: Spontaneous
  Country: US (occurrence: US)
  Receive Date: 20231201
  Receipt Date: 20231201
  Transmission Date: 20240109
  Serious: No
  Sender: FDA-Public Use
  Company Number: US-BRISTOL-MYERS SQUIBB COMPANY-2023-173528

PATIENT
  Age: 73 Year
  Sex: Male
  Weight: 80.29 kg

DRUGS (1)
  1. POMALYST [Suspect]
     Active Substance: POMALIDOMIDE
     Indication: Plasma cell myeloma
     Dosage: 3W, 1W OFF
     Route: 048

REACTIONS (4)
  - Asthenia [Unknown]
  - Asthenia [Unknown]
  - Feeling abnormal [Unknown]
  - Hypersomnia [Unknown]
